FAERS Safety Report 7658749-3 (Version None)
Quarter: 2011Q3

REPORT INFORMATION
  Report Type: 
  Country: None (occurrence: None)
  Receive Date: 20110805
  Receipt Date: 20110802
  Transmission Date: 20111222
  Serious: Yes (Hospitalization)
  Sender: FDA-Public Use
  Company Number: FR-PFIZER INC-2011175749

PATIENT
  Age: 64 Year
  Sex: Male

DRUGS (6)
  1. CIPROFLOXACIN [Suspect]
     Indication: SEPTIC SHOCK
  2. PIPERACILLIN [Suspect]
     Indication: INFECTION
     Dosage: UNK
     Dates: start: 20110601, end: 20110608
  3. CIPROFLOXACIN [Suspect]
     Indication: PNEUMONIA
     Dosage: UNK
     Dates: start: 20110510, end: 20110514
  4. PIPERACILLIN AND TAZOBACTAM [Suspect]
     Indication: INFECTION
     Dosage: UNK
     Dates: start: 20110531, end: 20110601
  5. AMIKACIN [Suspect]
     Indication: INFECTION
     Dosage: UNK
     Dates: start: 20110531, end: 20110602
  6. FLUCONAZOLE [Suspect]
     Indication: INFECTION
     Dosage: UNK
     Dates: start: 20110601

REACTIONS (1)
  - TOXIC SKIN ERUPTION [None]
